FAERS Safety Report 17562178 (Version 1)
Quarter: 2020Q1

REPORT INFORMATION
  Report Type: Spontaneous
  Country: US (occurrence: US)
  Receive Date: 20200319
  Receipt Date: 20200319
  Transmission Date: 20200409
  Serious: No
  Sender: FDA-Public Use
  Company Number: US-AMGEN-USASP2020043263

PATIENT
  Age: 40 Year
  Sex: Female

DRUGS (2)
  1. AIMOVIG [Suspect]
     Active Substance: ERENUMAB-AOOE
     Dosage: 140 MILLIGRAM , UNSUCCESSFUL ATTEMPT
     Route: 065
     Dates: start: 20200310
  2. AIMOVIG [Suspect]
     Active Substance: ERENUMAB-AOOE
     Indication: MIGRAINE PROPHYLAXIS
     Dosage: 140 MILLIGRAM,, TWO 70 MG AT A TIME
     Route: 065
     Dates: start: 2019

REACTIONS (4)
  - Accidental exposure to product [Unknown]
  - Wrong technique in device usage process [Unknown]
  - Nasopharyngitis [Not Recovered/Not Resolved]
  - Device issue [Unknown]

NARRATIVE: CASE EVENT DATE: 202003
